FAERS Safety Report 9235231 (Version 1)
Quarter: 2013Q2

REPORT INFORMATION
  Report Type: Report from Study
  Country: PL (occurrence: PL)
  Receive Date: 20130417
  Receipt Date: 20130417
  Transmission Date: 20140414
  Serious: Yes (Hospitalization)
  Sender: FDA-Public Use
  Company Number: PL-BIOGENIDEC-2013BI017648

PATIENT
  Age: 57 Year
  Sex: Female
  Weight: 62 kg

DRUGS (13)
  1. BG00012 [Suspect]
     Indication: MULTIPLE SCLEROSIS
     Dates: start: 20101110
  2. TETRAZEPAM [Concomitant]
  3. PENTOXYFILLINE [Concomitant]
  4. VITAMIN E [Concomitant]
  5. OMEPRAZOLE [Concomitant]
  6. ESSENTIALE FORTE [Concomitant]
  7. BETASERC [Concomitant]
  8. DICLO DUO [Concomitant]
  9. POLPRIL [Concomitant]
  10. POLOCARD [Concomitant]
  11. TERTENSIF [Concomitant]
  12. BACLOFEN [Concomitant]
  13. FURAGIN [Concomitant]

REACTIONS (1)
  - Bronchitis [Recovered/Resolved]
